FAERS Safety Report 8910716 (Version 1)
Quarter: 2012Q4

REPORT INFORMATION
  Report Type: Spontaneous
  Country: US (occurrence: None)
  Receive Date: 20121113
  Receipt Date: 20121113
  Transmission Date: 20130627
  Serious: Yes (Other)
  Sender: FDA-Public Use
  Company Number: 1474014

PATIENT
  Age: 22 Year
  Sex: Female

DRUGS (6)
  1. LIDOCAINE HCL [Suspect]
     Indication: HEMOSTASIS
     Dosage: 20 mg/mL, Intracervical
     Dates: start: 20120928, end: 20120928
  2. FENTANYL CITRATE [Suspect]
     Dosage: 100mcg/2mL
     Dates: start: 20120928, end: 20120928
  3. MIDAZOLAM [Suspect]
     Dosage: 2mg/2mL
     Dates: start: 20120928, end: 20120928
  4. VASOPRESSIN [Suspect]
     Indication: HEMOSTASIS
     Dosage: 20 u/mL  Intracervical
     Dates: start: 20120928, end: 20120928
  5. VASOPRESSIN [Suspect]
     Indication: LEGALLY INDUCED ABORTION
     Dosage: 20 u/mL  Intracervical
     Dates: start: 20120928, end: 20120928
  6. SODIUM BICARBONATE [Suspect]
     Indication: HEMOSTASIS
     Dosage: 1 cc, Intracervical
     Dates: start: 20120928, end: 20120928

REACTIONS (4)
  - Vocal cord paralysis [None]
  - Off label use [None]
  - Screaming [None]
  - Amnesia [None]
